FAERS Safety Report 7246895-8 (Version None)
Quarter: 2011Q1

REPORT INFORMATION
  Report Type: 
  Country: None (occurrence: None)
  Receive Date: 20110127
  Receipt Date: 20110120
  Transmission Date: 20110831
  Serious: Yes (Hospitalization)
  Sender: FDA-Public Use
  Company Number: GB-SANOFI-AVENTIS-2011SA004135

PATIENT
  Age: 81 Year
  Sex: Male

DRUGS (12)
  1. ALBUTEROL [Concomitant]
  2. EZETIMIBE [Concomitant]
  3. FRUSEMIDE [Concomitant]
  4. ISOSORBIDE MONONITRATE [Concomitant]
  5. FLUTICASONE PROPIONATE [Concomitant]
  6. PARACETAMOL [Concomitant]
  7. CLOPIDOGREL BISULFATE [Suspect]
     Route: 048
     Dates: end: 20110106
  8. FLAVOXATE HYDROCHLORIDE [Concomitant]
  9. FYBOGEL [Concomitant]
  10. GLYCERYL TRINITRATE [Concomitant]
  11. DIGOXIN [Concomitant]
  12. METOPROLOL TARTRATE [Concomitant]

REACTIONS (6)
  - OEDEMA PERIPHERAL [None]
  - DUODENAL ULCER [None]
  - HIATUS HERNIA [None]
  - UPPER GASTROINTESTINAL HAEMORRHAGE [None]
  - GASTRITIS [None]
  - CARDIAC FAILURE CONGESTIVE [None]
